FAERS Safety Report 7089327-5 (Version None)
Quarter: 2010Q4

REPORT INFORMATION
  Report Type: 
  Country: None (occurrence: None)
  Receive Date: 20101108
  Receipt Date: 20101029
  Transmission Date: 20110411
  Serious: Yes (Hospitalization)
  Sender: FDA-Public Use
  Company Number: US-GENZYME-CLOF-1001262

PATIENT
  Sex: Female
  Weight: 93.8 kg

DRUGS (12)
  1. CLOLAR [Suspect]
     Indication: ACUTE MYELOID LEUKAEMIA
     Dosage: 25 MG/M2, QDX5
     Route: 042
     Dates: start: 20100919, end: 20100923
  2. GRANULOCYTE COLONY STIMULATING FACTOR [Suspect]
     Indication: ACUTE MYELOID LEUKAEMIA
     Dosage: 5 MCG/KG, QD
     Route: 065
     Dates: start: 20100918, end: 20100918
  3. CYTARABINE [Suspect]
     Indication: ACUTE MYELOID LEUKAEMIA
     Dosage: 2 G/M2, QDX5
     Route: 042
     Dates: start: 20100919, end: 20100923
  4. ACYCLOVIR SODIUM [Concomitant]
     Dosage: 400 MG, Q12HR
     Route: 048
  5. FAT EMULSIONS [Concomitant]
     Dosage: 250 ML, QD
     Route: 042
  6. FILGRASTIM [Concomitant]
     Dosage: 480 MCG/DAY, QD
     Route: 058
  7. ONDANSETRON [Concomitant]
     Dosage: 8 MG, TID
     Route: 042
  8. PANTOPRAZOLE [Concomitant]
     Dosage: 40 MG, QD
     Route: 048
  9. VANCOMYCIN [Concomitant]
     Dosage: 1.5 G, TID
     Route: 042
  10. VORICONAZOLE [Concomitant]
     Dosage: 280 MG, Q12HR
     Route: 042
  11. IMIPENEM AND CILASTATIN [Concomitant]
     Dosage: 500 MG, QID
     Route: 042
  12. TPN ELECTROLYTES IN PLASTIC CONTAINER [Concomitant]
     Route: 042

REACTIONS (1)
  - ATRIAL FIBRILLATION [None]
